FAERS Safety Report 7645116-1 (Version None)
Quarter: 2011Q3

REPORT INFORMATION
  Report Type: 
  Country: None (occurrence: None)
  Receive Date: 20110729
  Receipt Date: 20110728
  Transmission Date: 20111222
  Serious: Yes (Death, Other)
  Sender: FDA-Public Use
  Company Number: PHEH2006US15191

PATIENT
  Sex: Male

DRUGS (32)
  1. ZOMETA [Suspect]
     Dates: end: 20040101
  2. NORVASC [Concomitant]
  3. FLEXERIL [Concomitant]
  4. CYMBALTA [Concomitant]
  5. ACETAMINOPHEN [Concomitant]
     Dosage: 650 MG, Q4H PRN
     Route: 048
  6. PIPERACILLIN AND TAZOBACTAM [Concomitant]
  7. AMLODIPINE BESYLATE [Concomitant]
     Dosage: 10 MG, UNK
     Route: 048
  8. THALIDOMIDE [Concomitant]
  9. VITAMIN B6 [Concomitant]
  10. VELCADE [Concomitant]
  11. AUGMENTIN '125' [Concomitant]
  12. ACIPHEX [Concomitant]
  13. DOCUSATE SODIUM [Concomitant]
     Dosage: 100 MG, Q8H PRN
  14. AREDIA [Suspect]
     Dates: start: 19980610
  15. NORVASC [Concomitant]
     Dosage: 10 MG, QD
     Route: 048
  16. AZITHROMYCIN [Concomitant]
     Dosage: 500 MG, UNK
     Route: 042
  17. PROSCAR [Concomitant]
     Indication: BENIGN PROSTATIC HYPERPLASIA
  18. BIAXIN [Concomitant]
  19. FERROUS SULFATE TAB [Concomitant]
  20. ASPIRIN [Concomitant]
  21. PROVIGIL [Concomitant]
     Dosage: 20 MG, DAILY
  22. ATIVAN [Concomitant]
     Indication: ANXIETY
     Dosage: 1 MG, DAILY
  23. TYLENOL-500 [Concomitant]
  24. ESOMEPRAZOLE MAGNESIUM [Concomitant]
     Dosage: 20 MG, UNK
     Route: 048
  25. FOLIC ACID [Concomitant]
  26. DEXAMETHASONE [Concomitant]
  27. VITAMIN B-12 [Concomitant]
  28. FINASTERIDE [Concomitant]
     Dosage: 5 MG, UNK
     Route: 048
  29. ENOXAPARIN [Concomitant]
     Dosage: 60 MG, UNK
  30. PREDNISONE [Concomitant]
  31. ALKERAN [Concomitant]
  32. IBUPROFEN (ADVIL) [Concomitant]

REACTIONS (61)
  - OSTEITIS [None]
  - TOOTH FRACTURE [None]
  - OESOPHAGEAL DISORDER [None]
  - COLONIC POLYP [None]
  - NEUROPATHY PERIPHERAL [None]
  - KYPHOSIS [None]
  - PLATELET COUNT DECREASED [None]
  - CEREBRAL ISCHAEMIA [None]
  - PAIN [None]
  - VENTRICULAR EXTRASYSTOLES [None]
  - VENTRICULAR DYSFUNCTION [None]
  - ANGIOMYOLIPOMA [None]
  - TINNITUS [None]
  - MASS [None]
  - SYNOVIAL DISORDER [None]
  - PSORIASIS [None]
  - BASAL CELL CARCINOMA [None]
  - ANAEMIA [None]
  - ATELECTASIS [None]
  - AORTIC ARTERIOSCLEROSIS [None]
  - BONE SCAN ABNORMAL [None]
  - SCAN BONE MARROW ABNORMAL [None]
  - OSTEONECROSIS OF JAW [None]
  - DECREASED INTEREST [None]
  - FISTULA [None]
  - DYSPLASTIC NAEVUS [None]
  - ACTINIC KERATOSIS [None]
  - VISION BLURRED [None]
  - FATIGUE [None]
  - CONTUSION [None]
  - PULMONARY CONGESTION [None]
  - ANXIETY [None]
  - JOINT CONTRACTURE [None]
  - PROSTATIC CALCIFICATION [None]
  - SUPRAVENTRICULAR EXTRASYSTOLES [None]
  - NEOPLASM MALIGNANT [None]
  - DYSPNOEA [None]
  - GENERAL PHYSICAL HEALTH DETERIORATION [None]
  - HIATUS HERNIA [None]
  - TENDERNESS [None]
  - INGUINAL HERNIA [None]
  - MITRAL VALVE INCOMPETENCE [None]
  - INSOMNIA [None]
  - PERICARDIAL EFFUSION [None]
  - FINGER DEFORMITY [None]
  - SPONDYLOLISTHESIS [None]
  - MACULAR DEGENERATION [None]
  - RIB FRACTURE [None]
  - HERPES VIRUS INFECTION [None]
  - VENOUS THROMBOSIS [None]
  - PNEUMONIA [None]
  - AORTIC VALVE CALCIFICATION [None]
  - SEBORRHOEIC KERATOSIS [None]
  - TACHYCARDIA [None]
  - SINUS DISORDER [None]
  - SUBRETINAL FIBROSIS [None]
  - OSTEOMYELITIS [None]
  - LIMB CRUSHING INJURY [None]
  - COMPRESSION FRACTURE [None]
  - INTERVERTEBRAL DISC DEGENERATION [None]
  - MITRAL VALVE CALCIFICATION [None]
